FAERS Safety Report 21699596 (Version 4)
Quarter: 2025Q1

REPORT INFORMATION
  Report Type: Spontaneous
  Country: US (occurrence: US)
  Receive Date: 20221208
  Receipt Date: 20250310
  Transmission Date: 20250408
  Serious: No
  Sender: PFIZER
  Company Number: US-PFIZER INC-PV202200118575

PATIENT
  Age: 73 Year
  Sex: Female
  Weight: 53.515 kg

DRUGS (1)
  1. XELJANZ XR [Suspect]
     Active Substance: TOFACITINIB CITRATE
     Indication: Rheumatoid arthritis
     Dosage: 11 MG, 1X/DAY
     Route: 048

REACTIONS (3)
  - Memory impairment [Unknown]
  - Cardiac disorder [Unknown]
  - Pain [Recovering/Resolving]
